FAERS Safety Report 6360224-3 (Version None)
Quarter: 2009Q3

REPORT INFORMATION
  Report Type: 
  Country: None (occurrence: None)
  Receive Date: 20090917
  Receipt Date: 20090910
  Transmission Date: 20100115
  Serious: Yes (Other)
  Sender: FDA-Public Use
  Company Number: PH-GILEAD-E2B_00000422

PATIENT
  Sex: Female

DRUGS (1)
  1. ADEFOVIR DIPIVOXIL KIT [Suspect]
     Indication: HEPATITIS B
     Route: 065
     Dates: start: 20090101

REACTIONS (2)
  - FOETAL HEART RATE ABNORMAL [None]
  - PATERNAL DRUGS AFFECTING FOETUS [None]
